FAERS Safety Report 19072638 (Version 1)
Quarter: 2021Q1

REPORT INFORMATION
  Report Type: Spontaneous
  Country: US (occurrence: US)
  Receive Date: 20210329
  Receipt Date: 20210329
  Transmission Date: 20210420
  Serious: Yes (Other)
  Sender: FDA-Public Use
  Company Number: None

PATIENT
  Age: 25 Year
  Sex: Male
  Weight: 72.57 kg

DRUGS (3)
  1. KOSELUGO [Concomitant]
     Active Substance: SELUMETINIB
  2. AFINITOR [Suspect]
     Active Substance: EVEROLIMUS
     Indication: BRAIN NEOPLASM MALIGNANT
     Route: 048
     Dates: start: 202102, end: 202103
  3. ERGOCALCIFEROL. [Concomitant]
     Active Substance: ERGOCALCIFEROL

REACTIONS (2)
  - Stomatitis [None]
  - Rash [None]

NARRATIVE: CASE EVENT DATE: 202103
